FAERS Safety Report 8849959 (Version 2)
Quarter: 2014Q2

REPORT INFORMATION
  Report Type: Spontaneous
  Country: US (occurrence: US)
  Receive Date: 20121019
  Receipt Date: 20131024
  Transmission Date: 20141212
  Serious: No
  Sender: FDA-Public Use
  Company Number: US-PFIZER INC-2012261407

PATIENT
  Age: 3 Year
  Sex: Female

DRUGS (1)
  1. SOLU-MEDROL [Suspect]
     Indication: WHEEZING
     Dosage: UNK, SINGLE

REACTIONS (2)
  - Urticaria [Unknown]
  - Wheezing [Unknown]
